FAERS Safety Report 9677151 (Version 2)
Quarter: 2013Q4

REPORT INFORMATION
  Report Type: Report from Study
  Country: US (occurrence: US)
  Receive Date: 20131108
  Receipt Date: 20131219
  Transmission Date: 20140711
  Serious: Yes (Death, Life-Threatening, Hospitalization)
  Sender: FDA-Public Use
  Company Number: US-BRISTOL-MYERS SQUIBB COMPANY-19735208

PATIENT
  Age: 69 Year
  Sex: Male
  Weight: 69.16 kg

DRUGS (12)
  1. PACLITAXEL [Suspect]
     Indication: NON-SMALL CELL LUNG CANCER
     Dosage: LAST DOSE 17OCT13 (400MG)- CYCLE 2 DAY 1.
     Route: 042
     Dates: start: 20130913
  2. CARBOPLATIN [Suspect]
     Indication: NON-SMALL CELL LUNG CANCER
     Dosage: LAST DOSE 17OCT13 (758MG)- CYCLE 2 DAY 1.?1DF=6 AUC
     Route: 042
     Dates: start: 20130913
  3. NECITUMUMAB [Suspect]
     Indication: NON-SMALL CELL LUNG CANCER
     Dosage: LAST DOSE 17OCT13- CYCLE 2 DAY 1.
     Route: 042
     Dates: start: 20130913
  4. PRILOSEC [Concomitant]
     Dates: start: 20130501
  5. XARELTO [Concomitant]
     Dates: start: 20130801
  6. COMBIVENT [Concomitant]
     Dates: start: 2012
  7. SPIRIVA [Concomitant]
     Dates: start: 2012
  8. SYMBICORT [Concomitant]
     Dates: start: 20130701
  9. XANAX [Concomitant]
     Dates: start: 2011
  10. PROPAFENONE HCL [Concomitant]
     Dates: start: 20130917
  11. DIGOXIN [Concomitant]
     Dates: start: 20130917
  12. OXYGEN [Concomitant]
     Dates: start: 20130701

REACTIONS (8)
  - Malignant neoplasm progression [Fatal]
  - Pneumonia [Fatal]
  - Febrile neutropenia [Not Recovered/Not Resolved]
  - Asthenia [Not Recovered/Not Resolved]
  - Dyspnoea [Not Recovered/Not Resolved]
  - Hypotension [Unknown]
  - Dysphonia [Unknown]
  - Sepsis [Not Recovered/Not Resolved]
